FAERS Safety Report 20393386 (Version 3)
Quarter: 2022Q1

REPORT INFORMATION
  Report Type: Report from Study
  Country: US (occurrence: US)
  Receive Date: 20220128
  Receipt Date: 20220225
  Transmission Date: 20220424
  Serious: No
  Sender: FDA-Public Use
  Company Number: US-GILEAD-2022-0566845

PATIENT
  Age: 63 Year
  Sex: Male

DRUGS (9)
  1. SOFOSBUVIR\VELPATASVIR [Suspect]
     Active Substance: SOFOSBUVIR\VELPATASVIR
     Indication: Chronic hepatitis C
     Dosage: 1 DOSAGE FORM, QD
     Route: 048
     Dates: start: 20220106
  2. GABAPENTIN [Concomitant]
     Active Substance: GABAPENTIN
  3. FOLIC ACID [Concomitant]
     Active Substance: FOLIC ACID
  4. ATENOLOL [Concomitant]
     Active Substance: ATENOLOL
  5. COMPAZINE [Concomitant]
     Active Substance: PROCHLORPERAZINE MALEATE
  6. ALBUTEROL SULFATE [Concomitant]
     Active Substance: ALBUTEROL SULFATE
  7. BUDESONIDE\FORMOTEROL\GLYCOPYRRONIUM [Concomitant]
     Active Substance: BUDESONIDE\FORMOTEROL\GLYCOPYRRONIUM
  8. ZOFRAN [Concomitant]
     Active Substance: ONDANSETRON HYDROCHLORIDE
  9. TYLENOL EXTRA STRENGTH [Concomitant]
     Active Substance: ACETAMINOPHEN

REACTIONS (5)
  - Insomnia [Recovered/Resolved]
  - Headache [Unknown]
  - Anxiety [Unknown]
  - Irritability [Unknown]
  - Drug effect less than expected [Not Recovered/Not Resolved]

NARRATIVE: CASE EVENT DATE: 20220106
